FAERS Safety Report 9980979 (Version 1)
Quarter: 2014Q1

REPORT INFORMATION
  Report Type: Spontaneous
  Country: US (occurrence: US)
  Receive Date: 20140307
  Receipt Date: 20140307
  Transmission Date: 20141002
  Serious: Yes (Other)
  Sender: FDA-Public Use
  Company Number: US-ASTRAZENECA-2014SE15221

PATIENT
  Age: 77 Year
  Sex: Female
  Weight: 64.9 kg

DRUGS (12)
  1. NEXIUM [Suspect]
     Indication: GASTROOESOPHAGEAL REFLUX DISEASE
     Route: 048
     Dates: start: 2001
  2. LISINOPRIL [Suspect]
     Indication: BLOOD PRESSURE ABNORMAL
     Dosage: UNKNOWN DAILY
     Route: 048
  3. DULCOLAX [Concomitant]
     Indication: CONSTIPATION
     Dosage: UNKNOWN UNK
  4. COLACE [Concomitant]
     Indication: CONSTIPATION
     Route: 048
     Dates: start: 20140222
  5. ASACOL [Concomitant]
     Dosage: UNKNOWN UNK
     Route: 048
     Dates: start: 2002, end: 20140212
  6. ASACOL [Concomitant]
     Dosage: UNKNOWN UNK
     Route: 048
     Dates: start: 20140222
  7. CIPROFLAXIN [Concomitant]
     Indication: ANTIBIOTIC THERAPY
     Route: 048
     Dates: start: 20140222
  8. ASPIRIN [Concomitant]
     Indication: ISCHAEMIC HEART DISEASE PROPHYLAXIS
     Route: 048
     Dates: start: 2005, end: 20140212
  9. ASPIRIN [Concomitant]
     Indication: ISCHAEMIC HEART DISEASE PROPHYLAXIS
     Route: 048
     Dates: start: 20140222
  10. HYDROCHLORATHIAZIDE [Concomitant]
     Indication: BLOOD PRESSURE ABNORMAL
     Route: 048
     Dates: start: 201311
  11. VALTREX [Concomitant]
     Indication: HERPES ZOSTER
     Route: 048
  12. LIPITOR [Concomitant]
     Indication: BLOOD CHOLESTEROL
     Route: 048

REACTIONS (6)
  - Bladder disorder [Unknown]
  - Haematuria [Recovering/Resolving]
  - Crohn^s disease [Unknown]
  - Energy increased [Unknown]
  - Blood pressure inadequately controlled [Unknown]
  - Constipation [Recovering/Resolving]
